FAERS Safety Report 4677917-6 (Version None)
Quarter: 2005Q2

REPORT INFORMATION
  Report Type: 
  Country: None (occurrence: None)
  Receive Date: 20050531
  Receipt Date: 20050516
  Transmission Date: 20051028
  Serious: Yes (Other)
  Sender: FDA-Public Use
  Company Number: US-GLAXOSMITHKLINE-A0558694A

PATIENT
  Age: 76 Year
  Sex: Female
  Weight: 57 kg

DRUGS (3)
  1. NICORETTE (MINT) [Suspect]
     Route: 002
     Dates: start: 20050401
  2. SPIRONOLACTONE [Concomitant]
     Indication: HYPERTRICHOSIS
     Dosage: 25MG PER DAY
     Route: 048
  3. LOVASTATIN [Concomitant]
     Indication: BLOOD CHOLESTEROL INCREASED
     Dosage: 20MG PER DAY
     Route: 048
     Dates: start: 20050501

REACTIONS (4)
  - BLOOD GLUCOSE INCREASED [None]
  - DIABETES MELLITUS [None]
  - INTENTIONAL MISUSE [None]
  - ORAL DISCOMFORT [None]
